FAERS Safety Report 7429418-X (Version None)
Quarter: 2011Q2

REPORT INFORMATION
  Report Type: 
  Country: None (occurrence: None)
  Receive Date: 20110421
  Receipt Date: 20110414
  Transmission Date: 20111010
  Serious: Yes (Other)
  Sender: FDA-Public Use
  Company Number: US-SANOFI-AVENTIS-2011SA023942

PATIENT
  Age: 64 Year
  Sex: Female

DRUGS (6)
  1. MAXZIDE [Concomitant]
  2. POTASSIUM [Concomitant]
  3. MULTAQ [Suspect]
     Indication: ATRIAL FIBRILLATION
     Route: 048
     Dates: start: 20100924, end: 20100927
  4. ZESTRIL [Concomitant]
  5. VITAMIN D [Concomitant]
  6. COUMADIN [Concomitant]

REACTIONS (1)
  - ATRIAL FIBRILLATION [None]
